FAERS Safety Report 9625048 (Version 1)
Quarter: 2013Q4

REPORT INFORMATION
  Report Type: Spontaneous
  Country: US (occurrence: US)
  Receive Date: 20131016
  Receipt Date: 20131016
  Transmission Date: 20140711
  Serious: Yes (Hospitalization)
  Sender: FDA-Public Use
  Company Number: US-BRISTOL-MYERS SQUIBB COMPANY-19526342

PATIENT
  Age: 70 Year
  Sex: Male
  Weight: 81.63 kg

DRUGS (3)
  1. COUMADIN [Suspect]
  2. XARELTO [Suspect]
     Indication: THROMBOSIS PROPHYLAXIS
     Route: 048
     Dates: start: 201306, end: 201307
  3. XARELTO [Suspect]
     Indication: HIP ARTHROPLASTY
     Route: 048
     Dates: start: 201306, end: 201307

REACTIONS (3)
  - Myocardial infarction [Not Recovered/Not Resolved]
  - Hypertension [Not Recovered/Not Resolved]
  - Product quality issue [Unknown]
